FAERS Safety Report 10252711 (Version 1)
Quarter: 2014Q2

REPORT INFORMATION
  Report Type: Spontaneous
  Country: FR (occurrence: FR)
  Receive Date: 20140623
  Receipt Date: 20140623
  Transmission Date: 20141212
  Serious: Yes (Hospitalization)
  Sender: FDA-Public Use
  Company Number: FR-009507513-1406FRA007912

PATIENT
  Age: 59 Year
  Sex: Female
  Weight: 65 kg

DRUGS (9)
  1. JANUMET [Suspect]
     Dosage: 2 DF, QD
     Route: 048
  2. SOLU-MEDROL [Suspect]
     Dosage: 500 MG, QD
     Route: 042
  3. APROVEL [Concomitant]
     Dosage: 75 MG, QD
     Route: 048
  4. CRESTOR [Concomitant]
     Dosage: 1 DF, QD
     Route: 048
  5. OMEPRAZOLE [Concomitant]
     Dosage: 20 MG, QD
     Route: 048
  6. MEBEVERINE HYDROCHLORIDE [Concomitant]
     Dosage: 400 MG, QD
     Route: 048
  7. BETAHISTINE [Concomitant]
     Dosage: UNK UNK, TID
     Route: 048
  8. DOLIPRANE [Concomitant]
     Dosage: 1 G, TID
     Route: 048
  9. NIFLUGEL [Concomitant]
     Route: 003

REACTIONS (1)
  - Diabetes mellitus inadequate control [Recovered/Resolved]
